FAERS Safety Report 24038661 (Version 3)
Quarter: 2025Q2

REPORT INFORMATION
  Report Type: Spontaneous
  Country: ES (occurrence: ES)
  Receive Date: 20240702
  Receipt Date: 20250514
  Transmission Date: 20250716
  Serious: Yes (Death, Hospitalization, Other)
  Sender: AUROBINDO
  Company Number: ES-TEVA-VS-3210622

PATIENT
  Age: 41 Year
  Sex: Female

DRUGS (3)
  1. ACETAMINOPHEN [Suspect]
     Active Substance: ACETAMINOPHEN
     Indication: Product used for unknown indication
     Route: 065
  2. QUETIAPINE [Suspect]
     Active Substance: QUETIAPINE
     Indication: Product used for unknown indication
     Route: 065
  3. IBUPROFEN [Suspect]
     Active Substance: IBUPROFEN
     Indication: Product used for unknown indication
     Route: 065

REACTIONS (5)
  - Toxicity to various agents [Fatal]
  - Multiple organ dysfunction syndrome [Fatal]
  - Somnolence [Unknown]
  - Asthenia [Unknown]
  - Pain [Unknown]
